FAERS Safety Report 15815057 (Version 1)
Quarter: 2019Q1

REPORT INFORMATION
  Report Type: Spontaneous
  Country: JP (occurrence: JP)
  Receive Date: 20190112
  Receipt Date: 20190112
  Transmission Date: 20190417
  Serious: Yes (Other)
  Sender: FDA-Public Use
  Company Number: JP-B.I. PHARMACEUTICALS,INC./RIDGEFIELD-2019-EV-000003

PATIENT
  Age: 77 Year
  Sex: Male

DRUGS (6)
  1. BI-SIFROL [Suspect]
     Active Substance: PRAMIPEXOLE
     Indication: PARKINSON^S DISEASE
     Route: 065
     Dates: start: 2005, end: 2005
  2. CARBIDOPA AND LEVODOPA [Concomitant]
     Active Substance: CARBIDOPA\LEVODOPA
     Dosage: PATIENT WAS TAKING LEVODOPA 1,500-1,800 MG/DAY ON HIS OWN INITIATIVE. OVERUSE LEVODOPA FROM 2012
     Route: 065
     Dates: start: 2012, end: 2014
  3. CARBIDOPA AND LEVODOPA [Concomitant]
     Active Substance: CARBIDOPA\LEVODOPA
     Indication: PARKINSON^S DISEASE
     Route: 065
     Dates: start: 2005
  4. CARBIDOPA AND LEVODOPA [Concomitant]
     Active Substance: CARBIDOPA\LEVODOPA
     Dosage: 1,200-1,800 MG/DAY
     Route: 065
     Dates: start: 2010
  5. BI-SIFROL [Suspect]
     Active Substance: PRAMIPEXOLE
     Dosage: DOSE INCREASED
     Route: 065
     Dates: start: 2008, end: 2011
  6. CARBIDOPA AND LEVODOPA [Concomitant]
     Active Substance: CARBIDOPA\LEVODOPA
     Dosage: 1,200-1,800 MG/DAY
     Route: 065
     Dates: start: 2010

REACTIONS (1)
  - Impulse-control disorder [Not Recovered/Not Resolved]

NARRATIVE: CASE EVENT DATE: 2008
